FAERS Safety Report 18870139 (Version 4)
Quarter: 2021Q2

REPORT INFORMATION
  Report Type: Spontaneous
  Country: US (occurrence: US)
  Receive Date: 20210209
  Receipt Date: 20210520
  Transmission Date: 20210717
  Serious: Yes (Hospitalization)
  Sender: FDA-Public Use
  Company Number: US-BIOMARINAP-US-2021-134882

PATIENT
  Age: 19 Year
  Sex: Female

DRUGS (2)
  1. ALDURAZYME [Suspect]
     Active Substance: LARONIDASE
     Indication: MUCOPOLYSACCHARIDOSIS I
     Dosage: 23.3 MILLIGRAM, QW
     Route: 041
     Dates: start: 2016, end: 20210412
  2. ALDURAZYME [Suspect]
     Active Substance: LARONIDASE
     Indication: MUCOPOLYSACCHARIDOSIS
     Dosage: 23.2 MILLIGRAM, QW
     Route: 041
     Dates: start: 20161013, end: 20210114

REACTIONS (5)
  - Exposure during pregnancy [Unknown]
  - Intentional dose omission [Unknown]
  - Cardiac disorder [Unknown]
  - Dyspnoea [Unknown]
  - Caesarean section [Unknown]

NARRATIVE: CASE EVENT DATE: 20210120
